FAERS Safety Report 17746352 (Version 2)
Quarter: 2020Q2

REPORT INFORMATION
  Report Type: Spontaneous
  Country: JP (occurrence: JP)
  Receive Date: 20200505
  Receipt Date: 20200608
  Transmission Date: 20200714
  Serious: Yes (Hospitalization, Other)
  Sender: FDA-Public Use
  Company Number: JP-SHIRE-JP202014737

PATIENT
  Age: 23 Year
  Sex: Male
  Weight: 57.1 kg

DRUGS (11)
  1. ADYNOVATE [Suspect]
     Active Substance: ANTIHEMOPHILIC FACTOR, HUMAN RECOMBINANT
     Indication: FACTOR VIII DEFICIENCY
     Dosage: 2000 INTERNATIONAL UNIT, 2X A WEEK
     Route: 042
     Dates: start: 20181022
  2. EMICIZUMAB. [Concomitant]
     Active Substance: EMICIZUMAB
     Indication: FACTOR VIII DEFICIENCY
     Dosage: 3 MILLIGRAM/KILOGRAM, 1X/WEEK
     Route: 058
     Dates: start: 20190809, end: 201909
  3. ADVATE [Suspect]
     Active Substance: ANTIHEMOPHILIC FACTOR, HUMAN RECOMBINANT
     Indication: HAEMORRHAGE
     Dosage: 500 INTERNATIONAL UNIT, 2X A WEEK
     Route: 042
     Dates: start: 20170529, end: 20171116
  4. ADYNOVATE [Suspect]
     Active Substance: ANTIHEMOPHILIC FACTOR, HUMAN RECOMBINANT
     Indication: FACTOR VIII DEFICIENCY
     Dosage: 3000 INTERNATIONAL UNIT, EVERY 3 DAYS
     Route: 042
     Dates: end: 20190815
  5. ADYNOVATE [Suspect]
     Active Substance: ANTIHEMOPHILIC FACTOR, HUMAN RECOMBINANT
     Indication: FACTOR VIII DEFICIENCY
     Dosage: 500 INTERNATIONAL UNIT, 2X A WEEK
     Route: 042
     Dates: start: 20171120, end: 20181018
  6. ADYNOVATE [Suspect]
     Active Substance: ANTIHEMOPHILIC FACTOR, HUMAN RECOMBINANT
     Indication: FACTOR VIII DEFICIENCY
     Dosage: 2000 INTERNATIONAL UNIT, 2X A WEEK
     Route: 042
     Dates: start: 20171120, end: 20181018
  7. ADYNOVATE [Suspect]
     Active Substance: ANTIHEMOPHILIC FACTOR, HUMAN RECOMBINANT
     Indication: FACTOR VIII DEFICIENCY
     Dosage: 1000 INTERNATIONAL UNIT, 2X A WEEK
     Route: 042
     Dates: start: 20181022
  8. ADVATE [Suspect]
     Active Substance: ANTIHEMOPHILIC FACTOR, HUMAN RECOMBINANT
     Indication: FACTOR VIII DEFICIENCY
     Dosage: 2000 INTERNATIONAL UNIT, 2X A WEEK
     Route: 042
     Dates: start: 20150828, end: 20171116
  9. EMICIZUMAB. [Concomitant]
     Active Substance: EMICIZUMAB
     Dosage: 6 MILLIGRAM/KILOGRAM, EVERY 4 WK
     Route: 058
     Dates: start: 201909
  10. ADVATE [Suspect]
     Active Substance: ANTIHEMOPHILIC FACTOR, HUMAN RECOMBINANT
     Indication: FACTOR VIII DEFICIENCY
     Dosage: 500 INTERNATIONAL UNIT, 2X A WEEK
     Route: 042
     Dates: start: 20150213, end: 20150825
  11. ADVATE [Suspect]
     Active Substance: ANTIHEMOPHILIC FACTOR, HUMAN RECOMBINANT
     Indication: FACTOR VIII DEFICIENCY
     Dosage: 1000 INTERNATIONAL UNIT, 2X A WEEK
     Route: 042
     Dates: start: 20150213, end: 20150825

REACTIONS (7)
  - Haemorrhage [Recovered/Resolved]
  - Hepatic steatosis [Not Recovered/Not Resolved]
  - Hyperuricaemia [Not Recovered/Not Resolved]
  - Poor venous access [Recovered/Resolved]
  - Muscle haemorrhage [Recovered/Resolved]
  - Renal haemorrhage [Recovered/Resolved]
  - Haemarthrosis [Recovered/Resolved]

NARRATIVE: CASE EVENT DATE: 20170130
